FAERS Safety Report 8433580 (Version 2)
Quarter: 2012Q4

REPORT INFORMATION
  Report Type: 
  Country: FR (occurrence: FR)
  Receive Date: 20120229
  Receipt Date: 20121211
  Transmission Date: 20130627
  Serious: Yes (Hospitalization)
  Sender: FDA-Public Use
  Company Number: FR-PFIZER INC-2012046283

PATIENT
  Age: 68 Year
  Sex: Male

DRUGS (3)
  1. ATGAM [Suspect]
     Dosage: UNK
     Route: 042
     Dates: start: 20111129, end: 20111129
  2. PRAVASTATIN SODIUM [Concomitant]
     Indication: DYSLIPIDAEMIA
     Dosage: UNK
     Route: 048
  3. TAMSULOSIN [Concomitant]
     Route: 048

REACTIONS (4)
  - Renal failure acute [Recovering/Resolving]
  - Pyrexia [Recovered/Resolved]
  - Hepatocellular injury [Recovered/Resolved]
  - Serum sickness [Recovered/Resolved]
